FAERS Safety Report 8458546 (Version 3)
Quarter: 2012Q4

REPORT INFORMATION
  Report Type: 
  Country: US (occurrence: US)
  Receive Date: 20120314
  Receipt Date: 20121101
  Transmission Date: 20130627
  Serious: Yes (Other)
  Sender: FDA-Public Use
  Company Number: US-GLAXOSMITHKLINE-A0969566A

PATIENT
  Age: 23 Year
  Sex: Female

DRUGS (2)
  1. LAMICTAL [Suspect]
     Indication: CONVULSION
     Dosage: 100MG See dosage text
     Route: 048
     Dates: start: 200812
  2. KEPPRA [Suspect]
     Indication: CONVULSION
     Dates: start: 200806

REACTIONS (5)
  - Optic neuritis [Not Recovered/Not Resolved]
  - Blindness [Unknown]
  - Visual acuity reduced [Unknown]
  - Memory impairment [Unknown]
  - Influenza like illness [Unknown]
